FAERS Safety Report 24627124 (Version 1)
Quarter: 2024Q4

REPORT INFORMATION
  Report Type: Spontaneous
  Country: NL (occurrence: NL)
  Receive Date: 20241116
  Receipt Date: 20241116
  Transmission Date: 20250115
  Serious: Yes (Hospitalization)
  Sender: ROCHE
  Company Number: None

PATIENT
  Age: 67 Year
  Sex: Female
  Weight: 37 kg

DRUGS (4)
  1. MYCOPHENOLATE MOFETIL [Suspect]
     Active Substance: MYCOPHENOLATE MOFETIL
     Indication: Prophylaxis against transplant rejection
     Dosage: 2 PIECES TWICE A DAY
     Route: 048
     Dates: start: 20220603, end: 20241104
  2. TACROLIMUS TABLET MGA 1MG (ENVARSUS) / ENVARSUS TABLET MVA 1MG [Concomitant]
     Dosage: MODIFIED-RELEASE TABLET, 1 MG (MILLIGRAM)
     Route: 048
  3. PANTOPRAZOLE [Concomitant]
     Active Substance: PANTOPRAZOLE
     Dosage: GASTRO-RESISTANT TABLET, 40 MG (MILLIGRAM)
     Route: 048
  4. HYDROXYZINE TABLET OMHULD  25MG / Brand name not specified [Concomitant]
     Dosage: COATED TABLET, 25 MG (MILLIGRAMS)
     Route: 048

REACTIONS (2)
  - Diarrhoea [Not Recovered/Not Resolved]
  - Dehydration [Not Recovered/Not Resolved]
